FAERS Safety Report 7220981-0 (Version None)
Quarter: 2011Q1

REPORT INFORMATION
  Report Type: 
  Country: None (occurrence: None)
  Receive Date: 20110112
  Receipt Date: 20110106
  Transmission Date: 20110831
  Serious: No
  Sender: FDA-Public Use
  Company Number: PHHY2010JP88724

PATIENT
  Age: 75 Year
  Sex: Male

DRUGS (3)
  1. BUFFERIN [Concomitant]
     Dosage: 81 MG
  2. LAMISIL [Suspect]
     Indication: ONYCHOMYCOSIS
     Dosage: UNK
     Route: 048
     Dates: start: 20100831
  3. BLOPRESS [Concomitant]
     Dosage: 12 MG

REACTIONS (1)
  - RETINAL HAEMORRHAGE [None]
